FAERS Safety Report 15800485 (Version 2)
Quarter: 2019Q1

REPORT INFORMATION
  Report Type: Spontaneous
  Country: US (occurrence: US)
  Receive Date: 20190108
  Receipt Date: 20190228
  Transmission Date: 20190417
  Serious: No
  Sender: FDA-Public Use
  Company Number: US-ASTRAZENECA-2018SF70660

PATIENT
  Age: 1034 Month
  Sex: Female
  Weight: 48.1 kg

DRUGS (2)
  1. SYMBICORT [Suspect]
     Active Substance: BUDESONIDE\FORMOTEROL FUMARATE DIHYDRATE
     Indication: ASTHMA
     Dosage: 160/4.5 MCGS, 2 PUFFS TWICE DAILY
     Route: 055
     Dates: start: 2016
  2. VENTOLIN [Concomitant]
     Active Substance: ALBUTEROL SULFATE
     Dosage: 90UG/INHAL TWO TIMES A DAY
     Route: 055

REACTIONS (5)
  - Device malfunction [Unknown]
  - Nasal congestion [Unknown]
  - Intentional device misuse [Unknown]
  - Product dose omission [Unknown]
  - Drug ineffective [Unknown]

NARRATIVE: CASE EVENT DATE: 201812
